FAERS Safety Report 4650187-0 (Version None)
Quarter: 2005Q2

REPORT INFORMATION
  Report Type: 
  Country: None (occurrence: None)
  Receive Date: 20050428
  Receipt Date: 20050422
  Transmission Date: 20051028
  Serious: Yes (Hospitalization, Other)
  Sender: FDA-Public Use
  Company Number: 2005063648

PATIENT
  Age: 69 Year
  Sex: Female

DRUGS (6)
  1. TAHOR (ATORVASTATIN) [Suspect]
     Indication: ILL-DEFINED DISORDER
     Dosage: 20 MG (1 IN 1 D),
     Dates: end: 20050227
  2. TETRAZEPAM (TETRAZEPAM) [Suspect]
     Indication: ILL-DEFINED DISORDER
     Dosage: (1 IN 1 D),
     Dates: end: 20050227
  3. FLUINDIONE (FLUINDIONE) [Suspect]
     Indication: PHLEBOTHROMBOSIS
     Dosage: (1 IN 1 D), ORAL
     Route: 048
     Dates: start: 20050203, end: 20050227
  4. ATENOLOL [Suspect]
     Indication: ILL-DEFINED DISORDER
     Dosage: 100 MG (1 IN 1 D),
     Dates: end: 20050227
  5. EBASTINE [Suspect]
     Indication: ILL-DEFINED DISORDER
     Dosage: (1 IN 1 D),
     Dates: end: 20050227
  6. TRAMADOL HCL [Suspect]
     Indication: ILL-DEFINED DISORDER
     Dosage: (1 IN 1 D),
     Dates: end: 20050227

REACTIONS (6)
  - BONE MARROW DEPRESSION [None]
  - CONFUSIONAL STATE [None]
  - GENERAL PHYSICAL HEALTH DETERIORATION [None]
  - PHLEBOTHROMBOSIS [None]
  - PURPURA [None]
  - PYREXIA [None]
